FAERS Safety Report 7824811-5 (Version None)
Quarter: 2011Q4

REPORT INFORMATION
  Report Type: 
  Country: None (occurrence: None)
  Receive Date: 20111019
  Receipt Date: 20110201
  Transmission Date: 20120403
  Serious: Yes (Other)
  Sender: FDA-Public Use
  Company Number: US-BRISTOL-MYERS SQUIBB COMPANY-15521990

PATIENT
  Sex: Female

DRUGS (1)
  1. AVALIDE [Suspect]
     Dosage: 1DF=300/12.5 UNIT NOT SPECIFIED; DOSE INCREASED TO 300/25 UNIT NOT SPECIFIED

REACTIONS (2)
  - JOINT SWELLING [None]
  - ARRHYTHMIA [None]
